FAERS Safety Report 8811179 (Version 1)
Quarter: 2012Q4

REPORT INFORMATION
  Report Type: Spontaneous
  Country: US (occurrence: None)
  Receive Date: 20120925
  Receipt Date: 20120925
  Transmission Date: 20130627
  Serious: Yes (Other)
  Sender: FDA-Public Use
  Company Number: None

PATIENT
  Sex: Female
  Weight: 81.19 kg

DRUGS (1)
  1. ZOCOR [Suspect]
     Indication: HIGH CHOLESTEROL
     Dosage: 1 tab, daily, oral
     Route: 048

REACTIONS (4)
  - Myalgia [None]
  - Tendon pain [None]
  - Ligament pain [None]
  - Pain [None]
